FAERS Safety Report 6105599-5 (Version None)
Quarter: 2009Q1

REPORT INFORMATION
  Report Type: 
  Country: None (occurrence: None)
  Receive Date: 20090304
  Receipt Date: 20090304
  Transmission Date: 20090719
  Serious: Yes (Other)
  Sender: FDA-Public Use
  Company Number: None

PATIENT
  Age: 8 Year
  Sex: Male
  Weight: 32.2054 kg

DRUGS (1)
  1. SINGULAIR [Suspect]
     Indication: ASTHMA
     Dosage: 5MG QD PO
     Route: 048

REACTIONS (5)
  - ARTHRALGIA [None]
  - MOOD SWINGS [None]
  - MORBID THOUGHTS [None]
  - PAIN IN EXTREMITY [None]
  - RASH [None]
